FAERS Safety Report 21300811 (Version 2)
Quarter: 2022Q4

REPORT INFORMATION
  Report Type: Report from Study
  Country: CN (occurrence: CN)
  Receive Date: 20220907
  Receipt Date: 20221018
  Transmission Date: 20230112
  Serious: Yes (Hospitalization)
  Sender: FDA-Public Use
  Company Number: CN-BRISTOL-MYERS SQUIBB COMPANY-2022-101037

PATIENT
  Age: 50 Year
  Sex: Male

DRUGS (1)
  1. NIVOLUMAB [Suspect]
     Active Substance: NIVOLUMAB
     Indication: Gastric cancer
     Dosage: FREQ: 1 EVERY 3 WEEKS
     Route: 041
     Dates: start: 20220414

REACTIONS (4)
  - Dizziness [Unknown]
  - White blood cell count decreased [Unknown]
  - Transaminases increased [Unknown]
  - Off label use [Unknown]

NARRATIVE: CASE EVENT DATE: 20220830
